FAERS Safety Report 7245766-0 (Version None)
Quarter: 2011Q1

REPORT INFORMATION
  Report Type: 
  Country: None (occurrence: None)
  Receive Date: 20110126
  Receipt Date: 20110120
  Transmission Date: 20110831
  Serious: No
  Sender: FDA-Public Use
  Company Number: US-PFIZER INC-2011014719

PATIENT
  Sex: Male
  Weight: 156 kg

DRUGS (1)
  1. CELEBREX [Suspect]
     Indication: ANALGESIC THERAPY
     Dosage: 200 MG, DAILY
     Route: 048
     Dates: start: 20110110, end: 20110113

REACTIONS (1)
  - RASH MACULO-PAPULAR [None]
